FAERS Safety Report 7065246-5 (Version None)
Quarter: 2010Q4

REPORT INFORMATION
  Report Type: 
  Country: None (occurrence: None)
  Receive Date: 20101027
  Receipt Date: 20101019
  Transmission Date: 20110411
  Serious: Yes (Hospitalization)
  Sender: FDA-Public Use
  Company Number: FR-KINGPHARMUSA00001-K201001297

PATIENT
  Age: 80 Year
  Sex: Female

DRUGS (1)
  1. ALTACE [Suspect]
     Dosage: 40 MG, SINGLE
     Route: 048
     Dates: start: 20100907, end: 20100907

REACTIONS (3)
  - ACCIDENTAL OVERDOSE [None]
  - NO ADVERSE EVENT [None]
  - WRONG DRUG ADMINISTERED [None]
